FAERS Safety Report 5168100-9 (Version None)
Quarter: 2006Q4

REPORT INFORMATION
  Report Type: 
  Country: None (occurrence: None)
  Receive Date: 20061208
  Receipt Date: 20060519
  Transmission Date: 20070319
  Serious: Yes (Other)
  Sender: FDA-Public Use
  Company Number: PHEH2006US06615

PATIENT
  Age: 81 Year
  Sex: Female

DRUGS (7)
  1. AROMASIN [Concomitant]
     Dosage: UNK, UNK
     Dates: start: 20060101
  2. POTASSIUM ACETATE [Concomitant]
     Dosage: 20 MG, UNK
     Dates: start: 20010101
  3. FUROSEMIDE [Concomitant]
     Dosage: 20 MG, UNK
     Dates: start: 20010101
  4. LIPITOR [Concomitant]
     Dosage: 120 MG, UNK
     Dates: start: 19960101
  5. DILTIAZEM HCL [Concomitant]
     Dosage: 120 MG, UNK
     Dates: start: 19960101
  6. ZOMETA [Suspect]
     Indication: METASTASES TO BONE
     Dosage: 3-4 MG, EVERY 4 WEEKS
     Dates: start: 20030916, end: 20060125
  7. ARIMIDEX [Concomitant]
     Dosage: 1 MG, UNK
     Dates: start: 20010101, end: 20060101

REACTIONS (4)
  - DENTAL CARE [None]
  - OSTEONECROSIS [None]
  - PAIN IN JAW [None]
  - TOOTH EXTRACTION [None]
